FAERS Safety Report 7914993-9 (Version None)
Quarter: 2011Q4

REPORT INFORMATION
  Report Type: 
  Country: None (occurrence: None)
  Receive Date: 20111115
  Receipt Date: 20111109
  Transmission Date: 20120403
  Serious: Yes (Hospitalization, Disabling)
  Sender: FDA-Public Use
  Company Number: US-SANOFI-AVENTIS-2011SA074118

PATIENT
  Sex: Female

DRUGS (1)
  1. LANTUS [Suspect]
     Dosage: 40 UNITS IN THE MORNING AND 50 UNITS IN THE EVENING
     Route: 058
     Dates: start: 20080101

REACTIONS (2)
  - ANKLE FRACTURE [None]
  - MEDICATION ERROR [None]
